FAERS Safety Report 14246578 (Version 2)
Quarter: 2018Q1

REPORT INFORMATION
  Report Type: Report from Study
  Country: DE (occurrence: DE)
  Receive Date: 20171204
  Receipt Date: 20180311
  Transmission Date: 20180508
  Serious: Yes (Other)
  Sender: FDA-Public Use
  Company Number: PHHY2017DE177968

PATIENT
  Sex: Female
  Weight: 86 kg

DRUGS (14)
  1. COSENTYX [Suspect]
     Active Substance: SECUKINUMAB
     Dosage: 300 MG, PER APPLICATION (ONCE)
     Route: 065
     Dates: start: 20170222
  2. COSENTYX [Suspect]
     Active Substance: SECUKINUMAB
     Dosage: 300 MG, PER APPLICATION (ONCE)
     Route: 065
     Dates: start: 20170802
  3. COSENTYX [Suspect]
     Active Substance: SECUKINUMAB
     Dosage: 300 MG, PER APPLICATION (ONCE)
     Route: 065
     Dates: start: 20170301
  4. COSENTYX [Suspect]
     Active Substance: SECUKINUMAB
     Dosage: 300 MG, PER APPLICATION (ONCE)
     Route: 065
     Dates: start: 20170308
  5. COSENTYX [Suspect]
     Active Substance: SECUKINUMAB
     Dosage: 300 MG, PER APPLICATION (ONCE)
     Route: 065
     Dates: start: 20170510
  6. PREDNICARBATE. [Concomitant]
     Active Substance: PREDNICARBATE
     Indication: PSORIASIS
     Dosage: UNK
     Route: 061
     Dates: start: 20110728
  7. BETAMETHASONE VALERATE. [Concomitant]
     Active Substance: BETAMETHASONE VALERATE
     Indication: PSORIASIS
     Dosage: UNK
     Route: 061
     Dates: start: 20130829
  8. COSENTYX [Suspect]
     Active Substance: SECUKINUMAB
     Dosage: 300 MG, PER APPLICATION (ONCE)
     Route: 065
     Dates: start: 20170705
  9. JANUMET [Concomitant]
     Active Substance: METFORMIN HYDROCHLORIDE\SITAGLIPTIN PHOSPHATE
     Indication: DIABETES MELLITUS
     Dosage: 1 DF, QD
     Route: 048
     Dates: start: 20070101
  10. PERMETHRIN. [Concomitant]
     Active Substance: PERMETHRIN
     Indication: ARTHROPOD INFESTATION
     Dosage: 1 DF, QD
     Route: 061
     Dates: start: 20130314
  11. COSENTYX [Suspect]
     Active Substance: SECUKINUMAB
     Dosage: 300 MG, PER APPLICATION (ONCE)
     Route: 065
     Dates: start: 20170315
  12. COSENTYX [Suspect]
     Active Substance: SECUKINUMAB
     Indication: PSORIASIS
     Dosage: 300 MG, PER APPLICATION (ONCE)
     Route: 065
     Dates: start: 20170215
  13. COSENTYX [Suspect]
     Active Substance: SECUKINUMAB
     Dosage: 300 MG, PER APPLICATION (ONCE)
     Route: 065
     Dates: start: 20170412
  14. COSENTYX [Suspect]
     Active Substance: SECUKINUMAB
     Dosage: 300 MG, PER APPLICATION (ONCE)
     Route: 065
     Dates: start: 20170607

REACTIONS (1)
  - Mycosis fungoides [Recovered/Resolved]

NARRATIVE: CASE EVENT DATE: 20170906
